FAERS Safety Report 24404364 (Version 3)
Quarter: 2025Q2

REPORT INFORMATION
  Report Type: Spontaneous
  Country: PL (occurrence: PL)
  Receive Date: 20241007
  Receipt Date: 20250512
  Transmission Date: 20250716
  Serious: Yes (Other)
  Sender: ACCORD
  Company Number: None

PATIENT
  Age: 49 Year
  Sex: Male

DRUGS (14)
  1. BUSULFAN [Suspect]
     Active Substance: BUSULFAN
     Indication: Acute myeloid leukaemia
  2. METHOTREXATE [Suspect]
     Active Substance: METHOTREXATE
     Indication: Acute myeloid leukaemia
  3. IDARUBICIN [Suspect]
     Active Substance: IDARUBICIN
     Indication: Acute myeloid leukaemia
  4. MYCOPHENOLATE MOFETIL [Suspect]
     Active Substance: MYCOPHENOLATE MOFETIL
     Indication: Acute myeloid leukaemia
  5. SORAFENIB [Suspect]
     Active Substance: SORAFENIB
     Indication: Antifungal prophylaxis
     Dosage: 400 MG, BID
  6. FLUDARABINE [Suspect]
     Active Substance: FLUDARABINE PHOSPHATE
     Indication: Acute myeloid leukaemia
     Dosage: 30 MG/M2, QD (-6 DO -2)
  7. DEXAMETHASONE SODIUM PHOSPHATE [Suspect]
     Active Substance: DEXAMETHASONE SODIUM PHOSPHATE
     Indication: Acute myeloid leukaemia
  8. CYTARABINE [Suspect]
     Active Substance: CYTARABINE
     Indication: Acute myeloid leukaemia
  9. CYCLOPHOSPHAMIDE [Suspect]
     Active Substance: CYCLOPHOSPHAMIDE
     Indication: Acute myeloid leukaemia
  10. TACROLIMUS [Suspect]
     Active Substance: TACROLIMUS
     Indication: Antifungal prophylaxis
  11. DAUNORUBICIN [Suspect]
     Active Substance: DAUNORUBICIN
     Indication: Acute myeloid leukaemia
  12. MIDOSTAURIN [Suspect]
     Active Substance: MIDOSTAURIN
     Indication: Acute myeloid leukaemia
     Dosage: 50 MG, Q12H (FROM DAY 8 TO 21)
     Dates: start: 202004
  13. CYCLOSPORINE [Suspect]
     Active Substance: CYCLOSPORINE
     Indication: Acute myeloid leukaemia
  14. POSACONAZOLE [Concomitant]
     Active Substance: POSACONAZOLE

REACTIONS (14)
  - Cytomegalovirus infection reactivation [Unknown]
  - Rash maculo-papular [Unknown]
  - Graft versus host disease [Unknown]
  - Urinary tract infection [Unknown]
  - Neutropenia [Unknown]
  - Headache [Unknown]
  - Febrile neutropenia [Unknown]
  - Pancytopenia [Unknown]
  - Diarrhoea [Unknown]
  - Device related infection [Unknown]
  - Thrombocytopenia [Unknown]
  - Anaemia [Unknown]
  - Acute myeloid leukaemia recurrent [Unknown]
  - Pyrexia [Unknown]

NARRATIVE: CASE EVENT DATE: 20201201
